FAERS Safety Report 7116912-4 (Version None)
Quarter: 2010Q4

REPORT INFORMATION
  Report Type: 
  Country: None (occurrence: None)
  Receive Date: 20101115
  Receipt Date: 20100930
  Transmission Date: 20110411
  Serious: Yes (Other)
  Sender: FDA-Public Use
  Company Number: 2009BH019099

PATIENT
  Age: 22 Year
  Sex: Female
  Weight: 61.2356 kg

DRUGS (88)
  1. HEPARIN SODIUM [Suspect]
     Indication: ANTICOAGULANT THERAPY
     Dosage: (25000 UNITS, CONTINUOUS, IVDRI) (25000 UNITS, CONTINUOUS; IV) (25000 UNITS, CONTINUOUS, IV) (2000 U
     Route: 042
     Dates: start: 20070601, end: 20070601
  2. HEPARIN SODIUM [Suspect]
     Indication: HAEMODIALYSIS
     Dosage: (25000 UNITS, CONTINUOUS, IVDRI) (25000 UNITS, CONTINUOUS; IV) (25000 UNITS, CONTINUOUS, IV) (2000 U
     Route: 042
     Dates: start: 20070601, end: 20070601
  3. HEPARIN SODIUM [Suspect]
     Indication: ANTICOAGULANT THERAPY
     Dosage: (25000 UNITS, CONTINUOUS, IVDRI) (25000 UNITS, CONTINUOUS; IV) (25000 UNITS, CONTINUOUS, IV) (2000 U
     Route: 042
     Dates: start: 20070925, end: 20070928
  4. HEPARIN SODIUM [Suspect]
     Indication: HAEMODIALYSIS
     Dosage: (25000 UNITS, CONTINUOUS, IVDRI) (25000 UNITS, CONTINUOUS; IV) (25000 UNITS, CONTINUOUS, IV) (2000 U
     Route: 042
     Dates: start: 20070925, end: 20070928
  5. HEPARIN SODIUM [Suspect]
     Indication: ANTICOAGULANT THERAPY
     Dosage: (25000 UNITS, CONTINUOUS, IVDRI) (25000 UNITS, CONTINUOUS; IV) (25000 UNITS, CONTINUOUS, IV) (2000 U
     Route: 042
     Dates: start: 20071023, end: 20071023
  6. HEPARIN SODIUM [Suspect]
     Indication: HAEMODIALYSIS
     Dosage: (25000 UNITS, CONTINUOUS, IVDRI) (25000 UNITS, CONTINUOUS; IV) (25000 UNITS, CONTINUOUS, IV) (2000 U
     Route: 042
     Dates: start: 20071023, end: 20071023
  7. HEPARIN SODIUM [Suspect]
     Indication: ANTICOAGULANT THERAPY
     Dosage: (25000 UNITS, CONTINUOUS, IVDRI) (25000 UNITS, CONTINUOUS; IV) (25000 UNITS, CONTINUOUS, IV) (2000 U
     Route: 042
     Dates: end: 20071113
  8. HEPARIN SODIUM [Suspect]
     Indication: HAEMODIALYSIS
     Dosage: (25000 UNITS, CONTINUOUS, IVDRI) (25000 UNITS, CONTINUOUS; IV) (25000 UNITS, CONTINUOUS, IV) (2000 U
     Route: 042
     Dates: end: 20071113
  9. HEPARIN SODIUM [Suspect]
     Indication: ANTICOAGULANT THERAPY
     Dosage: (25000 UNITS, CONTINUOUS, IVDRI) (25000 UNITS, CONTINUOUS; IV) (25000 UNITS, CONTINUOUS, IV) (2000 U
     Route: 042
     Dates: start: 20071201, end: 20071201
  10. HEPARIN SODIUM [Suspect]
     Indication: HAEMODIALYSIS
     Dosage: (25000 UNITS, CONTINUOUS, IVDRI) (25000 UNITS, CONTINUOUS; IV) (25000 UNITS, CONTINUOUS, IV) (2000 U
     Route: 042
     Dates: start: 20071201, end: 20071201
  11. HEPARIN SODIUM [Suspect]
     Indication: ANTICOAGULANT THERAPY
     Dosage: (25000 UNITS, CONTINUOUS, IVDRI) (25000 UNITS, CONTINUOUS; IV) (25000 UNITS, CONTINUOUS, IV) (2000 U
     Route: 042
     Dates: start: 20071205, end: 20071205
  12. HEPARIN SODIUM [Suspect]
     Indication: HAEMODIALYSIS
     Dosage: (25000 UNITS, CONTINUOUS, IVDRI) (25000 UNITS, CONTINUOUS; IV) (25000 UNITS, CONTINUOUS, IV) (2000 U
     Route: 042
     Dates: start: 20071205, end: 20071205
  13. HEPARIN SODIUM [Suspect]
     Indication: ANTICOAGULANT THERAPY
     Dosage: (25000 UNITS, CONTINUOUS, IVDRI) (25000 UNITS, CONTINUOUS; IV) (25000 UNITS, CONTINUOUS, IV) (2000 U
     Route: 042
     Dates: start: 20071206, end: 20071206
  14. HEPARIN SODIUM [Suspect]
     Indication: HAEMODIALYSIS
     Dosage: (25000 UNITS, CONTINUOUS, IVDRI) (25000 UNITS, CONTINUOUS; IV) (25000 UNITS, CONTINUOUS, IV) (2000 U
     Route: 042
     Dates: start: 20071206, end: 20071206
  15. HEPARIN SODIUM [Suspect]
     Indication: ANTICOAGULANT THERAPY
     Dosage: (25000 UNITS, CONTINUOUS, IVDRI) (25000 UNITS, CONTINUOUS; IV) (25000 UNITS, CONTINUOUS, IV) (2000 U
     Route: 042
     Dates: start: 20071206, end: 20071206
  16. HEPARIN SODIUM [Suspect]
     Indication: HAEMODIALYSIS
     Dosage: (25000 UNITS, CONTINUOUS, IVDRI) (25000 UNITS, CONTINUOUS; IV) (25000 UNITS, CONTINUOUS, IV) (2000 U
     Route: 042
     Dates: start: 20071206, end: 20071206
  17. HEPARIN SODIUM [Suspect]
     Indication: ANTICOAGULANT THERAPY
     Dosage: (25000 UNITS, CONTINUOUS, IVDRI) (25000 UNITS, CONTINUOUS; IV) (25000 UNITS, CONTINUOUS, IV) (2000 U
     Route: 042
     Dates: start: 20071208, end: 20071208
  18. HEPARIN SODIUM [Suspect]
     Indication: HAEMODIALYSIS
     Dosage: (25000 UNITS, CONTINUOUS, IVDRI) (25000 UNITS, CONTINUOUS; IV) (25000 UNITS, CONTINUOUS, IV) (2000 U
     Route: 042
     Dates: start: 20071208, end: 20071208
  19. HEPARIN SODIUM [Suspect]
     Indication: ANTICOAGULANT THERAPY
     Dosage: (25000 UNITS, CONTINUOUS, IVDRI) (25000 UNITS, CONTINUOUS; IV) (25000 UNITS, CONTINUOUS, IV) (2000 U
     Route: 042
     Dates: start: 20071209, end: 20071209
  20. HEPARIN SODIUM [Suspect]
     Indication: HAEMODIALYSIS
     Dosage: (25000 UNITS, CONTINUOUS, IVDRI) (25000 UNITS, CONTINUOUS; IV) (25000 UNITS, CONTINUOUS, IV) (2000 U
     Route: 042
     Dates: start: 20071209, end: 20071209
  21. HEPARIN SODIUM [Suspect]
     Indication: ANTICOAGULANT THERAPY
     Dosage: (25000 UNITS, CONTINUOUS, IVDRI) (25000 UNITS, CONTINUOUS; IV) (25000 UNITS, CONTINUOUS, IV) (2000 U
     Route: 042
     Dates: start: 20071208, end: 20071210
  22. HEPARIN SODIUM [Suspect]
     Indication: HAEMODIALYSIS
     Dosage: (25000 UNITS, CONTINUOUS, IVDRI) (25000 UNITS, CONTINUOUS; IV) (25000 UNITS, CONTINUOUS, IV) (2000 U
     Route: 042
     Dates: start: 20071208, end: 20071210
  23. HEPARIN SODIUM [Suspect]
     Indication: ANTICOAGULANT THERAPY
     Dosage: (25000 UNITS, CONTINUOUS, IVDRI) (25000 UNITS, CONTINUOUS; IV) (25000 UNITS, CONTINUOUS, IV) (2000 U
     Route: 042
     Dates: start: 20071205, end: 20071211
  24. HEPARIN SODIUM [Suspect]
     Indication: HAEMODIALYSIS
     Dosage: (25000 UNITS, CONTINUOUS, IVDRI) (25000 UNITS, CONTINUOUS; IV) (25000 UNITS, CONTINUOUS, IV) (2000 U
     Route: 042
     Dates: start: 20071205, end: 20071211
  25. HEPARIN SODIUM [Suspect]
     Indication: ANTICOAGULANT THERAPY
     Dosage: (25000 UNITS, CONTINUOUS, IVDRI) (25000 UNITS, CONTINUOUS; IV) (25000 UNITS, CONTINUOUS, IV) (2000 U
     Route: 042
     Dates: start: 20071212, end: 20071212
  26. HEPARIN SODIUM [Suspect]
     Indication: HAEMODIALYSIS
     Dosage: (25000 UNITS, CONTINUOUS, IVDRI) (25000 UNITS, CONTINUOUS; IV) (25000 UNITS, CONTINUOUS, IV) (2000 U
     Route: 042
     Dates: start: 20071212, end: 20071212
  27. HEPARIN SODIUM [Suspect]
     Indication: ANTICOAGULANT THERAPY
     Dosage: (25000 UNITS, CONTINUOUS, IVDRI) (25000 UNITS, CONTINUOUS; IV) (25000 UNITS, CONTINUOUS, IV) (2000 U
     Route: 042
     Dates: start: 20080212, end: 20080212
  28. HEPARIN SODIUM [Suspect]
     Indication: HAEMODIALYSIS
     Dosage: (25000 UNITS, CONTINUOUS, IVDRI) (25000 UNITS, CONTINUOUS; IV) (25000 UNITS, CONTINUOUS, IV) (2000 U
     Route: 042
     Dates: start: 20080212, end: 20080212
  29. HEPARIN SODIUM [Suspect]
     Indication: ANTICOAGULANT THERAPY
     Dosage: (25000 UNITS, CONTINUOUS, IVDRI) (25000 UNITS, CONTINUOUS; IV) (25000 UNITS, CONTINUOUS, IV) (2000 U
     Route: 042
     Dates: start: 20080219, end: 20080219
  30. HEPARIN SODIUM [Suspect]
     Indication: HAEMODIALYSIS
     Dosage: (25000 UNITS, CONTINUOUS, IVDRI) (25000 UNITS, CONTINUOUS; IV) (25000 UNITS, CONTINUOUS, IV) (2000 U
     Route: 042
     Dates: start: 20080219, end: 20080219
  31. HEPARIN SODIUM [Suspect]
     Indication: ANTICOAGULANT THERAPY
     Dosage: (25000 UNITS, CONTINUOUS, IVDRI) (25000 UNITS, CONTINUOUS; IV) (25000 UNITS, CONTINUOUS, IV) (2000 U
     Route: 042
     Dates: start: 20080424, end: 20080424
  32. HEPARIN SODIUM [Suspect]
     Indication: HAEMODIALYSIS
     Dosage: (25000 UNITS, CONTINUOUS, IVDRI) (25000 UNITS, CONTINUOUS; IV) (25000 UNITS, CONTINUOUS, IV) (2000 U
     Route: 042
     Dates: start: 20080424, end: 20080424
  33. HEPARIN SODIUM [Suspect]
     Indication: ANTICOAGULANT THERAPY
     Dosage: (25000 UNITS, CONTINUOUS, IVDRI) (25000 UNITS, CONTINUOUS; IV) (25000 UNITS, CONTINUOUS, IV) (2000 U
     Route: 042
     Dates: start: 20080425, end: 20080425
  34. HEPARIN SODIUM [Suspect]
     Indication: HAEMODIALYSIS
     Dosage: (25000 UNITS, CONTINUOUS, IVDRI) (25000 UNITS, CONTINUOUS; IV) (25000 UNITS, CONTINUOUS, IV) (2000 U
     Route: 042
     Dates: start: 20080425, end: 20080425
  35. HEPARIN SODIUM [Suspect]
     Indication: ANTICOAGULANT THERAPY
     Dosage: (25000 UNITS, CONTINUOUS, IVDRI) (25000 UNITS, CONTINUOUS; IV) (25000 UNITS, CONTINUOUS, IV) (2000 U
     Route: 042
     Dates: start: 20080425, end: 20080425
  36. HEPARIN SODIUM [Suspect]
     Indication: HAEMODIALYSIS
     Dosage: (25000 UNITS, CONTINUOUS, IVDRI) (25000 UNITS, CONTINUOUS; IV) (25000 UNITS, CONTINUOUS, IV) (2000 U
     Route: 042
     Dates: start: 20080425, end: 20080425
  37. HEPARIN SODIUM [Suspect]
     Indication: ANTICOAGULANT THERAPY
     Dosage: (25000 UNITS, CONTINUOUS, IVDRI) (25000 UNITS, CONTINUOUS; IV) (25000 UNITS, CONTINUOUS, IV) (2000 U
     Route: 042
     Dates: start: 20080427, end: 20080427
  38. HEPARIN SODIUM [Suspect]
     Indication: HAEMODIALYSIS
     Dosage: (25000 UNITS, CONTINUOUS, IVDRI) (25000 UNITS, CONTINUOUS; IV) (25000 UNITS, CONTINUOUS, IV) (2000 U
     Route: 042
     Dates: start: 20080427, end: 20080427
  39. HEPARIN SODIUM [Suspect]
     Indication: ANTICOAGULANT THERAPY
     Dosage: (25000 UNITS, CONTINUOUS, IVDRI) (25000 UNITS, CONTINUOUS; IV) (25000 UNITS, CONTINUOUS, IV) (2000 U
     Route: 042
     Dates: start: 20080427, end: 20080429
  40. HEPARIN SODIUM [Suspect]
     Indication: HAEMODIALYSIS
     Dosage: (25000 UNITS, CONTINUOUS, IVDRI) (25000 UNITS, CONTINUOUS; IV) (25000 UNITS, CONTINUOUS, IV) (2000 U
     Route: 042
     Dates: start: 20080427, end: 20080429
  41. HEPARIN SODIUM [Suspect]
     Indication: ANTICOAGULANT THERAPY
     Dosage: (25000 UNITS, CONTINUOUS, IVDRI) (25000 UNITS, CONTINUOUS; IV) (25000 UNITS, CONTINUOUS, IV) (2000 U
     Route: 042
     Dates: start: 20080430, end: 20080430
  42. HEPARIN SODIUM [Suspect]
     Indication: HAEMODIALYSIS
     Dosage: (25000 UNITS, CONTINUOUS, IVDRI) (25000 UNITS, CONTINUOUS; IV) (25000 UNITS, CONTINUOUS, IV) (2000 U
     Route: 042
     Dates: start: 20080430, end: 20080430
  43. HEPARIN SODIUM [Suspect]
     Indication: ANTICOAGULANT THERAPY
     Dosage: (25000 UNITS, CONTINUOUS, IVDRI) (25000 UNITS, CONTINUOUS; IV) (25000 UNITS, CONTINUOUS, IV) (2000 U
     Route: 042
     Dates: start: 20070918, end: 20080512
  44. HEPARIN SODIUM [Suspect]
     Indication: HAEMODIALYSIS
     Dosage: (25000 UNITS, CONTINUOUS, IVDRI) (25000 UNITS, CONTINUOUS; IV) (25000 UNITS, CONTINUOUS, IV) (2000 U
     Route: 042
     Dates: start: 20070918, end: 20080512
  45. HEPARIN SODIUM [Suspect]
     Indication: ANTICOAGULANT THERAPY
     Dosage: (25000 UNITS, CONTINUOUS, IVDRI) (25000 UNITS, CONTINUOUS; IV) (25000 UNITS, CONTINUOUS, IV) (2000 U
     Route: 042
     Dates: start: 20080522, end: 20080522
  46. HEPARIN SODIUM [Suspect]
     Indication: HAEMODIALYSIS
     Dosage: (25000 UNITS, CONTINUOUS, IVDRI) (25000 UNITS, CONTINUOUS; IV) (25000 UNITS, CONTINUOUS, IV) (2000 U
     Route: 042
     Dates: start: 20080522, end: 20080522
  47. HEPARIN SODIUM [Suspect]
     Indication: ANTICOAGULANT THERAPY
     Dosage: (25000 UNITS, CONTINUOUS, IVDRI) (25000 UNITS, CONTINUOUS; IV) (25000 UNITS, CONTINUOUS, IV) (2000 U
     Route: 042
     Dates: start: 20080724, end: 20080724
  48. HEPARIN SODIUM [Suspect]
     Indication: HAEMODIALYSIS
     Dosage: (25000 UNITS, CONTINUOUS, IVDRI) (25000 UNITS, CONTINUOUS; IV) (25000 UNITS, CONTINUOUS, IV) (2000 U
     Route: 042
     Dates: start: 20080724, end: 20080724
  49. HEPARIN SODIUM [Suspect]
     Indication: ANTICOAGULANT THERAPY
     Dosage: (25000 UNITS, CONTINUOUS, IVDRI) (25000 UNITS, CONTINUOUS; IV) (25000 UNITS, CONTINUOUS, IV) (2000 U
     Route: 042
     Dates: start: 20080731, end: 20080902
  50. HEPARIN SODIUM [Suspect]
     Indication: HAEMODIALYSIS
     Dosage: (25000 UNITS, CONTINUOUS, IVDRI) (25000 UNITS, CONTINUOUS; IV) (25000 UNITS, CONTINUOUS, IV) (2000 U
     Route: 042
     Dates: start: 20080731, end: 20080902
  51. HEPARIN SODIUM [Suspect]
     Indication: ANTICOAGULANT THERAPY
     Dosage: (25000 UNITS, CONTINUOUS, IVDRI) (25000 UNITS, CONTINUOUS; IV) (25000 UNITS, CONTINUOUS, IV) (2000 U
     Route: 042
     Dates: start: 20080923, end: 20080923
  52. HEPARIN SODIUM [Suspect]
     Indication: HAEMODIALYSIS
     Dosage: (25000 UNITS, CONTINUOUS, IVDRI) (25000 UNITS, CONTINUOUS; IV) (25000 UNITS, CONTINUOUS, IV) (2000 U
     Route: 042
     Dates: start: 20080923, end: 20080923
  53. HEPARIN SODIUM [Suspect]
     Indication: ANTICOAGULANT THERAPY
     Dosage: (25000 UNITS, CONTINUOUS, IVDRI) (25000 UNITS, CONTINUOUS; IV) (25000 UNITS, CONTINUOUS, IV) (2000 U
     Route: 042
     Dates: start: 20081018, end: 20081018
  54. HEPARIN SODIUM [Suspect]
     Indication: HAEMODIALYSIS
     Dosage: (25000 UNITS, CONTINUOUS, IVDRI) (25000 UNITS, CONTINUOUS; IV) (25000 UNITS, CONTINUOUS, IV) (2000 U
     Route: 042
     Dates: start: 20081018, end: 20081018
  55. HEPARIN SODIUM [Suspect]
     Indication: ANTICOAGULANT THERAPY
     Dosage: (25000 UNITS, CONTINUOUS, IVDRI) (25000 UNITS, CONTINUOUS; IV) (25000 UNITS, CONTINUOUS, IV) (2000 U
     Route: 042
     Dates: start: 20081018, end: 20081018
  56. HEPARIN SODIUM [Suspect]
     Indication: HAEMODIALYSIS
     Dosage: (25000 UNITS, CONTINUOUS, IVDRI) (25000 UNITS, CONTINUOUS; IV) (25000 UNITS, CONTINUOUS, IV) (2000 U
     Route: 042
     Dates: start: 20081018, end: 20081018
  57. HEPARIN SODIUM [Suspect]
     Indication: ANTICOAGULANT THERAPY
     Dosage: (25000 UNITS, CONTINUOUS, IVDRI) (25000 UNITS, CONTINUOUS; IV) (25000 UNITS, CONTINUOUS, IV) (2000 U
     Route: 042
     Dates: start: 20080208, end: 20090507
  58. HEPARIN SODIUM [Suspect]
     Indication: HAEMODIALYSIS
     Dosage: (25000 UNITS, CONTINUOUS, IVDRI) (25000 UNITS, CONTINUOUS; IV) (25000 UNITS, CONTINUOUS, IV) (2000 U
     Route: 042
     Dates: start: 20080208, end: 20090507
  59. HEPARIN SODIUM [Suspect]
     Indication: ANTICOAGULANT THERAPY
     Dosage: (25000 UNITS, CONTINUOUS, IVDRI) (25000 UNITS, CONTINUOUS; IV) (25000 UNITS, CONTINUOUS, IV) (2000 U
     Route: 042
     Dates: start: 20070131
  60. HEPARIN SODIUM [Suspect]
     Indication: HAEMODIALYSIS
     Dosage: (25000 UNITS, CONTINUOUS, IVDRI) (25000 UNITS, CONTINUOUS; IV) (25000 UNITS, CONTINUOUS, IV) (2000 U
     Route: 042
     Dates: start: 20070131
  61. HEPARIN SODIUM [Suspect]
     Indication: ANTICOAGULANT THERAPY
     Dosage: (25000 UNITS, CONTINUOUS, IVDRI) (25000 UNITS, CONTINUOUS; IV) (25000 UNITS, CONTINUOUS, IV) (2000 U
     Route: 042
     Dates: start: 20070925
  62. HEPARIN SODIUM [Suspect]
     Indication: HAEMODIALYSIS
     Dosage: (25000 UNITS, CONTINUOUS, IVDRI) (25000 UNITS, CONTINUOUS; IV) (25000 UNITS, CONTINUOUS, IV) (2000 U
     Route: 042
     Dates: start: 20070925
  63. HEPARIN SODIUM [Suspect]
     Indication: ANTICOAGULANT THERAPY
     Dosage: (25000 UNITS, CONTINUOUS, IVDRI) (25000 UNITS, CONTINUOUS; IV) (25000 UNITS, CONTINUOUS, IV) (2000 U
     Route: 042
     Dates: start: 20071208
  64. HEPARIN SODIUM [Suspect]
     Indication: HAEMODIALYSIS
     Dosage: (25000 UNITS, CONTINUOUS, IVDRI) (25000 UNITS, CONTINUOUS; IV) (25000 UNITS, CONTINUOUS, IV) (2000 U
     Route: 042
     Dates: start: 20071208
  65. HEPARIN SODIUM [Suspect]
     Indication: ANTICOAGULANT THERAPY
     Dosage: (25000 UNITS, CONTINUOUS, IVDRI) (25000 UNITS, CONTINUOUS; IV) (25000 UNITS, CONTINUOUS, IV) (2000 U
     Route: 042
     Dates: start: 20080401
  66. HEPARIN SODIUM [Suspect]
     Indication: HAEMODIALYSIS
     Dosage: (25000 UNITS, CONTINUOUS, IVDRI) (25000 UNITS, CONTINUOUS; IV) (25000 UNITS, CONTINUOUS, IV) (2000 U
     Route: 042
     Dates: start: 20080401
  67. HEPARIN SODIUM [Suspect]
     Indication: ANTICOAGULANT THERAPY
     Dosage: (25000 UNITS, CONTINUOUS, IVDRI) (25000 UNITS, CONTINUOUS; IV) (25000 UNITS, CONTINUOUS, IV) (2000 U
     Route: 042
     Dates: start: 20081101
  68. HEPARIN SODIUM [Suspect]
     Indication: HAEMODIALYSIS
     Dosage: (25000 UNITS, CONTINUOUS, IVDRI) (25000 UNITS, CONTINUOUS; IV) (25000 UNITS, CONTINUOUS, IV) (2000 U
     Route: 042
     Dates: start: 20081101
  69. HEPARIN SODIUM [Suspect]
     Indication: ANTICOAGULANT THERAPY
     Dosage: (25000 UNITS, CONTINUOUS, IVDRI) (25000 UNITS, CONTINUOUS; IV) (25000 UNITS, CONTINUOUS, IV) (2000 U
     Route: 042
     Dates: start: 20090101
  70. HEPARIN SODIUM [Suspect]
     Indication: HAEMODIALYSIS
     Dosage: (25000 UNITS, CONTINUOUS, IVDRI) (25000 UNITS, CONTINUOUS; IV) (25000 UNITS, CONTINUOUS, IV) (2000 U
     Route: 042
     Dates: start: 20090101
  71. HEPARIN SODIUM [Suspect]
     Indication: ANTICOAGULANT THERAPY
     Dosage: (25000 UNITS, CONTINUOUS, IVDRI) (25000 UNITS, CONTINUOUS; IV) (25000 UNITS, CONTINUOUS, IV) (2000 U
     Route: 042
     Dates: start: 20090101
  72. HEPARIN SODIUM [Suspect]
     Indication: HAEMODIALYSIS
     Dosage: (25000 UNITS, CONTINUOUS, IVDRI) (25000 UNITS, CONTINUOUS; IV) (25000 UNITS, CONTINUOUS, IV) (2000 U
     Route: 042
     Dates: start: 20090101
  73. HEPARIN SODIUM [Suspect]
     Indication: ANTICOAGULANT THERAPY
     Dosage: (25000 UNITS, CONTINUOUS, IVDRI) (25000 UNITS, CONTINUOUS; IV) (25000 UNITS, CONTINUOUS, IV) (2000 U
     Route: 042
     Dates: start: 20090401
  74. HEPARIN SODIUM [Suspect]
     Indication: HAEMODIALYSIS
     Dosage: (25000 UNITS, CONTINUOUS, IVDRI) (25000 UNITS, CONTINUOUS; IV) (25000 UNITS, CONTINUOUS, IV) (2000 U
     Route: 042
     Dates: start: 20090401
  75. HEPARIN SODIUM [Suspect]
     Indication: ANTICOAGULANT THERAPY
     Dosage: (25000 UNITS, CONTINUOUS, IVDRI) (25000 UNITS, CONTINUOUS; IV) (25000 UNITS, CONTINUOUS, IV) (2000 U
     Route: 042
     Dates: start: 20090407
  76. HEPARIN SODIUM [Suspect]
     Indication: HAEMODIALYSIS
     Dosage: (25000 UNITS, CONTINUOUS, IVDRI) (25000 UNITS, CONTINUOUS; IV) (25000 UNITS, CONTINUOUS, IV) (2000 U
     Route: 042
     Dates: start: 20090407
  77. PREDNISONE [Concomitant]
  78. AMITRIPTYLINE [Concomitant]
  79. SENSIPAR [Concomitant]
  80. HYDROXYCHLOROQUINE [Concomitant]
  81. RENALTABS [Concomitant]
  82. VITAMIN E [Concomitant]
  83. PROPRANOLOL [Concomitant]
  84. OMEPRAZOLE [Concomitant]
  85. BUTALBITAL W/ ASPIRIN + CAFFEINE [Concomitant]
  86. ZOLPIDEM [Concomitant]
  87. SEVELAMER [Concomitant]
  88. WARFARIN SODIUM [Concomitant]

REACTIONS (36)
  - ANAEMIA [None]
  - CELLULITIS [None]
  - CHILLS [None]
  - COAGULOPATHY [None]
  - CONDITION AGGRAVATED [None]
  - DEEP VEIN THROMBOSIS [None]
  - DEVICE RELATED INFECTION [None]
  - DIARRHOEA [None]
  - DIEULAFOY'S VASCULAR MALFORMATION [None]
  - DUODENAL ULCER HAEMORRHAGE [None]
  - DYSPNOEA [None]
  - ENTEROCOCCAL BACTERAEMIA [None]
  - FIBROMYALGIA [None]
  - FUNGAEMIA [None]
  - GASTRITIS EROSIVE [None]
  - GASTROINTESTINAL HAEMORRHAGE [None]
  - HAEMATOMA [None]
  - HAEMODIALYSIS [None]
  - HEADACHE [None]
  - HYPERCOAGULATION [None]
  - HYPERKALAEMIA [None]
  - HYPOTENSION [None]
  - INTERNATIONAL NORMALISED RATIO DECREASED [None]
  - NAUSEA [None]
  - PELVIC INFLAMMATORY DISEASE [None]
  - PERINEPHRIC COLLECTION [None]
  - POST PROCEDURAL HAEMORRHAGE [None]
  - PULMONARY EMBOLISM [None]
  - REFUSAL OF TREATMENT BY PATIENT [None]
  - SEROMA [None]
  - STAPHYLOCOCCAL BACTERAEMIA [None]
  - SYSTEMIC LUPUS ERYTHEMATOSUS [None]
  - TUBO-OVARIAN ABSCESS [None]
  - VAGINAL HAEMORRHAGE [None]
  - VASCULAR ACCESS COMPLICATION [None]
  - VOMITING [None]
